FAERS Safety Report 14571039 (Version 2)
Quarter: 2018Q2

REPORT INFORMATION
  Report Type: Spontaneous
  Country: FR (occurrence: FR)
  Receive Date: 20180226
  Receipt Date: 20180421
  Transmission Date: 20180711
  Serious: Yes (Hospitalization)
  Sender: FDA-Public Use
  Company Number: FR-SUN PHARMACEUTICAL INDUSTRIES LTD-2018RR-164449

PATIENT
  Age: 49 Year
  Sex: Female

DRUGS (2)
  1. MIVACURIUM CHLORIDE. [Suspect]
     Active Substance: MIVACURIUM CHLORIDE
     Indication: ANAESTHESIA
     Dosage: UNK ()
     Route: 042
     Dates: start: 20171222, end: 20171222
  2. TRAMADOL. [Suspect]
     Active Substance: TRAMADOL
     Indication: PRODUCT USED FOR UNKNOWN INDICATION
     Dosage: UNK ()
     Route: 065
     Dates: start: 20171222, end: 20171222

REACTIONS (2)
  - Pseudocholinesterase deficiency [Recovered/Resolved]
  - Sedation [Recovered/Resolved]

NARRATIVE: CASE EVENT DATE: 20171222
